FAERS Safety Report 18299665 (Version 2)
Quarter: 2020Q4

REPORT INFORMATION
  Report Type: Spontaneous
  Country: IT (occurrence: IT)
  Receive Date: 20200923
  Receipt Date: 20201002
  Transmission Date: 20210113
  Serious: Yes (Other)
  Sender: FDA-Public Use
  Company Number: IT-CURIUM-202000346

PATIENT
  Age: 24 Year
  Sex: Female

DRUGS (1)
  1. SODIUM IODIDE [Suspect]
     Active Substance: SODIUM IODIDE
     Indication: PAPILLARY THYROID CANCER
     Route: 065

REACTIONS (3)
  - Localised infection [Recovered/Resolved]
  - Leukopenia [Unknown]
  - Hair follicle tumour benign [Recovered/Resolved]
